FAERS Safety Report 21091404 (Version 4)
Quarter: 2022Q4

REPORT INFORMATION
  Report Type: Report from Study
  Country: US (occurrence: US)
  Receive Date: 20220716
  Receipt Date: 20221007
  Transmission Date: 20230113
  Serious: Yes (Other)
  Sender: FDA-Public Use
  Company Number: US-SHIRE-US201937775AA

PATIENT
  Sex: Female

DRUGS (1)
  1. HUMAN IMMUNOGLOBULIN G [Suspect]
     Active Substance: HUMAN IMMUNOGLOBULIN G
     Indication: Primary immunodeficiency syndrome
     Dosage: UNK
     Route: 065

REACTIONS (9)
  - Polymyalgia rheumatica [Unknown]
  - Sjogren^s syndrome [Unknown]
  - Neuropathy peripheral [Unknown]
  - Chronic inflammatory demyelinating polyradiculoneuropathy [Unknown]
  - Cough [Unknown]
  - Fall [Unknown]
  - Depression [Unknown]
  - COVID-19 [Recovered/Resolved]
  - Inappropriate schedule of product administration [Unknown]
